FAERS Safety Report 6167054-6 (Version None)
Quarter: 2009Q2

REPORT INFORMATION
  Report Type: 
  Country: None (occurrence: None)
  Receive Date: 20090423
  Receipt Date: 20090423
  Transmission Date: 20091009
  Serious: No
  Sender: FDA-Public Use
  Company Number: None

PATIENT
  Sex: Female
  Weight: 53.0709 kg

DRUGS (1)
  1. CRESTOR [Suspect]
     Indication: BLOOD CHOLESTEROL INCREASED
     Dosage: 5MG -1/2 OF 10MG- DAILY PO
     Route: 048
     Dates: start: 20090121, end: 20090320

REACTIONS (5)
  - ARTHRALGIA [None]
  - GAIT DISTURBANCE [None]
  - IMPAIRED DRIVING ABILITY [None]
  - PAIN IN EXTREMITY [None]
  - RECTAL PROLAPSE [None]
